FAERS Safety Report 5098436-1 (Version None)
Quarter: 2006Q3

REPORT INFORMATION
  Report Type: 
  Country: None (occurrence: None)
  Receive Date: 20060906
  Receipt Date: 20060117
  Transmission Date: 20061208
  Serious: No
  Sender: FDA-Public Use
  Company Number: US-GLAXOSMITHKLINE-A0589670A

PATIENT
  Age: 62 Year
  Sex: Female

DRUGS (2)
  1. REQUIP [Suspect]
     Indication: RESTLESS LEGS SYNDROME
     Dosage: .75MG PER DAY
     Route: 048
     Dates: start: 20051101
  2. NO CONCURRENT MEDICATION [Concomitant]

REACTIONS (1)
  - RESTLESS LEGS SYNDROME [None]
